FAERS Safety Report 6792748-9 (Version None)
Quarter: 2010Q2

REPORT INFORMATION
  Report Type: 
  Country: None (occurrence: None)
  Receive Date: 20100624
  Receipt Date: 20090429
  Transmission Date: 20101027
  Serious: Yes (Disabling, Other)
  Sender: FDA-Public Use
  Company Number: US-PFIZER INC-2008066990

PATIENT
  Sex: Female
  Weight: 61.678 kg

DRUGS (14)
  1. PROVERA [Suspect]
     Indication: HORMONE REPLACEMENT THERAPY
     Dosage: 2.5 MG,  5 MG , 10 MG
     Route: 048
     Dates: start: 19970101, end: 20020101
  2. PROVERA [Suspect]
     Indication: MENOPAUSAL SYMPTOMS
  3. MEDROXYPROGESTERONE ACETATE [Suspect]
     Indication: MENOPAUSAL SYMPTOMS
     Dosage: 2.5 MG AND 10 MG
     Route: 048
     Dates: start: 19970101, end: 20000101
  4. MEDROXYPROGESTERONE ACETATE [Suspect]
  5. ESTRACE [Suspect]
     Indication: HORMONE REPLACEMENT THERAPY
     Dosage: 1 MG AND 2 MG
     Dates: start: 19970101
  6. ESTRACE [Suspect]
     Indication: MENOPAUSAL SYMPTOMS
  7. ESTRADIOL [Suspect]
     Indication: HORMONE REPLACEMENT THERAPY
     Dosage: 1 MG AND 2 MG
     Dates: start: 19970101, end: 20020101
  8. ESTRADIOL [Suspect]
     Indication: MENOPAUSAL SYMPTOMS
  9. ESTRATEST [Suspect]
     Indication: HORMONE REPLACEMENT THERAPY
     Dosage: UNK
     Dates: start: 20010101, end: 20020101
  10. ESTRATEST [Suspect]
     Indication: MENOPAUSAL SYMPTOMS
  11. PREMARIN [Suspect]
     Indication: MENOPAUSAL SYMPTOMS
     Dosage: 0.625 MG
     Dates: start: 19980101
  12. ESTROGENS [Suspect]
     Indication: MENOPAUSAL SYMPTOMS
     Dosage: 2 MG
     Dates: start: 19990101, end: 20020101
  13. METOPROLOL [Concomitant]
     Indication: BLOOD PRESSURE
     Dosage: UNK
     Dates: start: 19960101
  14. FOSINOPRIL [Concomitant]
     Indication: MENOPAUSAL SYMPTOMS
     Dosage: UNK
     Dates: start: 19960101

REACTIONS (1)
  - BREAST CANCER FEMALE [None]
